FAERS Safety Report 11950786 (Version 1)
Quarter: 2016Q1

REPORT INFORMATION
  Report Type: Spontaneous
  Country: US (occurrence: US)
  Receive Date: 20160126
  Receipt Date: 20160126
  Transmission Date: 20160526
  Serious: No
  Sender: FDA-Public Use
  Company Number: US-PFIZER INC-2016040192

PATIENT
  Age: 47 Year
  Sex: Female

DRUGS (1)
  1. BICILLIN L-A [Suspect]
     Active Substance: PENICILLIN G BENZATHINE
     Dosage: 1.2 MILLION UNITS INJECTED THREE TIMES PER WEEK

REACTIONS (2)
  - Pain [Unknown]
  - Discomfort [Unknown]
